FAERS Safety Report 11555572 (Version 3)
Quarter: 2015Q4

REPORT INFORMATION
  Report Type: Spontaneous
  Country: IT (occurrence: IT)
  Receive Date: 20150925
  Receipt Date: 20151009
  Transmission Date: 20160304
  Serious: Yes (Death, Other)
  Sender: FDA-Public Use
  Company Number: IT-CONCORDIA PHARMACEUTICALS INC.-CO-ZN-IT-2015-047

PATIENT
  Age: 69 Year
  Sex: Male

DRUGS (6)
  1. RANITIDINE HYDROCHLORIDE. [Suspect]
     Active Substance: RANITIDINE HYDROCHLORIDE
     Indication: OFF LABEL USE
  2. CETIRIZINE HYDROCHLORIDE. [Suspect]
     Active Substance: CETIRIZINE HYDROCHLORIDE
     Indication: PREMEDICATION
  3. CETIRIZINE HYDROCHLORIDE. [Suspect]
     Active Substance: CETIRIZINE HYDROCHLORIDE
     Indication: OFF LABEL USE
  4. IOPROMIDE [Suspect]
     Active Substance: IOPROMIDE
     Indication: SCAN WITH CONTRAST
  5. RANITIDINE HYDROCHLORIDE. [Suspect]
     Active Substance: RANITIDINE HYDROCHLORIDE
     Indication: PREMEDICATION
     Route: 065
  6. IOPROMIDE [Suspect]
     Active Substance: IOPROMIDE

REACTIONS (5)
  - Anaphylactic shock [None]
  - Product use issue [None]
  - Wrong patient received medication [None]
  - Drug ineffective for unapproved indication [None]
  - Off label use [None]
